FAERS Safety Report 23060486 (Version 4)
Quarter: 2024Q4

REPORT INFORMATION
  Report Type: Report from Study
  Country: US (occurrence: US)
  Receive Date: 20231012
  Receipt Date: 20241101
  Transmission Date: 20250115
  Serious: Yes (Other)
  Sender: JAZZ
  Company Number: US-JAZZ PHARMACEUTICALS-2022-US-027176

PATIENT
  Age: 49 Year
  Sex: Female

DRUGS (24)
  1. XYWAV [Suspect]
     Active Substance: CALCIUM OXYBATE\MAGNESIUM OXYBATE\POTASSIUM OXYBATE\SODIUM OXYBATE
     Indication: Hypersomnia
     Dosage: 2.75 GRAM, BID
     Dates: start: 20220812
  2. XYWAV [Suspect]
     Active Substance: CALCIUM OXYBATE\MAGNESIUM OXYBATE\POTASSIUM OXYBATE\SODIUM OXYBATE
     Indication: Somnolence
     Dosage: 3 GRAM, BID
  3. XYWAV [Suspect]
     Active Substance: CALCIUM OXYBATE\MAGNESIUM OXYBATE\POTASSIUM OXYBATE\SODIUM OXYBATE
     Dosage: 3.5 GRAM, BID
     Route: 048
  4. XYWAV [Suspect]
     Active Substance: CALCIUM OXYBATE\MAGNESIUM OXYBATE\POTASSIUM OXYBATE\SODIUM OXYBATE
     Dosage: 3.75 GRAM, BID
     Route: 048
  5. XYWAV [Suspect]
     Active Substance: CALCIUM OXYBATE\MAGNESIUM OXYBATE\POTASSIUM OXYBATE\SODIUM OXYBATE
     Dosage: 4 GRAM
     Route: 048
  6. XYWAV [Suspect]
     Active Substance: CALCIUM OXYBATE\MAGNESIUM OXYBATE\POTASSIUM OXYBATE\SODIUM OXYBATE
     Dosage: 2.5 GRAM, BID
  7. XYWAV [Suspect]
     Active Substance: CALCIUM OXYBATE\MAGNESIUM OXYBATE\POTASSIUM OXYBATE\SODIUM OXYBATE
     Dosage: 3.25 GRAM, BID
  8. XYWAV [Suspect]
     Active Substance: CALCIUM OXYBATE\MAGNESIUM OXYBATE\POTASSIUM OXYBATE\SODIUM OXYBATE
     Dosage: UNK
  9. XYWAV [Suspect]
     Active Substance: CALCIUM OXYBATE\MAGNESIUM OXYBATE\POTASSIUM OXYBATE\SODIUM OXYBATE
     Dosage: FIRST DOSE 3.5 GRAM AND SECOND DOSE 3.25 GRAM
     Route: 048
  10. XYWAV [Suspect]
     Active Substance: CALCIUM OXYBATE\MAGNESIUM OXYBATE\POTASSIUM OXYBATE\SODIUM OXYBATE
     Dosage: UNK
  11. AMOXICILLIN [Concomitant]
     Active Substance: AMOXICILLIN
     Indication: Product used for unknown indication
     Dosage: UNK
     Dates: start: 20160510
  12. MODAFINIL [Concomitant]
     Active Substance: MODAFINIL
     Indication: Product used for unknown indication
     Dosage: UNK
     Dates: start: 20160510
  13. AFRIN ALLERGY [Concomitant]
     Indication: Product used for unknown indication
     Dosage: UNK
     Dates: start: 20230105
  14. CLARITIN-D NOS [Concomitant]
     Active Substance: LORATADINE\PSEUDOEPHEDRINE SULFATE
     Indication: Product used for unknown indication
     Dosage: UNK
     Dates: start: 20230105
  15. WELLBUTRIN [Concomitant]
     Active Substance: BUPROPION HYDROCHLORIDE
     Indication: Product used for unknown indication
     Dosage: 300 MILLIGRAM, QD
  16. WELLBUTRIN [Concomitant]
     Active Substance: BUPROPION HYDROCHLORIDE
     Dosage: 225 MILLIGRAM, QD
  17. NITAZOXANIDE [Concomitant]
     Active Substance: NITAZOXANIDE
     Indication: Product used for unknown indication
     Dosage: UNK
  18. BUPROPION HYDROCHLORIDE [Concomitant]
     Active Substance: BUPROPION HYDROCHLORIDE
     Indication: Product used for unknown indication
     Dosage: UNK
     Dates: start: 20231031
  19. IBUPROFEN [Concomitant]
     Active Substance: IBUPROFEN
     Indication: Product used for unknown indication
     Dosage: UNK
  20. METHOCARBAMOL [Concomitant]
     Active Substance: METHOCARBAMOL
     Indication: Product used for unknown indication
     Dosage: UNK
     Dates: start: 20240702
  21. INDOMETHACIN [Concomitant]
     Active Substance: INDOMETHACIN
     Indication: Product used for unknown indication
     Dosage: UNK
     Dates: start: 20240703
  22. GABAPENTIN [Concomitant]
     Active Substance: GABAPENTIN
     Indication: Product used for unknown indication
     Dosage: UNK
     Dates: start: 20240701
  23. ESTROGENS [Concomitant]
     Active Substance: ESTROGENS
     Indication: Menopause
     Dosage: UNK
     Dates: start: 20241025
  24. PROGESTERONE [Concomitant]
     Active Substance: PROGESTERONE
     Indication: Menopause

REACTIONS (13)
  - Gastroenteritis cryptosporidial [Recovered/Resolved]
  - Surgery [Unknown]
  - Influenza [Unknown]
  - Palpitations [Recovered/Resolved]
  - Heart rate irregular [Unknown]
  - Cough [Unknown]
  - Nasopharyngitis [Unknown]
  - Headache [Unknown]
  - Nausea [Unknown]
  - Anxiety [Unknown]
  - Hot flush [Recovered/Resolved]
  - Drug ineffective [Unknown]
  - Intentional dose omission [Unknown]

NARRATIVE: CASE EVENT DATE: 20230828
